FAERS Safety Report 8508032-9 (Version None)
Quarter: 2012Q3

REPORT INFORMATION
  Report Type: 
  Country: None (occurrence: None)
  Receive Date: 20120713
  Receipt Date: 20120707
  Transmission Date: 20120928
  Serious: Yes (Hospitalization, Other)
  Sender: FDA-Public Use
  Company Number: PHHY2012MX050299

PATIENT
  Sex: Female

DRUGS (4)
  1. CONCOR [Concomitant]
     Indication: BLOOD PRESSURE
     Dosage: 1 DF, UNK
     Dates: start: 20090601
  2. ZOLEDRONOC ACID [Suspect]
     Indication: OSTEOPOROSIS
     Dosage: 5 MG/100 ML YEARLY
     Route: 042
     Dates: start: 20110110
  3. ESCITALOPRAM [Concomitant]
     Indication: DEPRESSION
     Dosage: 1 DF, UNK
     Dates: start: 20030601
  4. JANUMET [Concomitant]
     Indication: DIABETES MELLITUS
     Dosage: 2 DF, UNK
     Dates: start: 20090601

REACTIONS (15)
  - PERIPHERAL SENSORY NEUROPATHY [None]
  - INFLAMMATION [None]
  - HEPATIC STEATOSIS [None]
  - OEDEMA PERIPHERAL [None]
  - SPINAL COLUMN INJURY [None]
  - HYPOTHYROIDISM [None]
  - MUSCLE ATROPHY [None]
  - SENSORY DISTURBANCE [None]
  - HEPATIC PAIN [None]
  - BACK DISORDER [None]
  - HEPATOMEGALY [None]
  - FALL [None]
  - CATARACT [None]
  - LUMBAR RADICULOPATHY [None]
  - GAIT DISTURBANCE [None]
